FAERS Safety Report 15767026 (Version 2)
Quarter: 2019Q1

REPORT INFORMATION
  Report Type: Spontaneous
  Country: CA (occurrence: CA)
  Receive Date: 20181227
  Receipt Date: 20190121
  Transmission Date: 20190417
  Serious: Yes (Other)
  Sender: FDA-Public Use
  Company Number: CA-PFIZER INC-2018526642

PATIENT
  Age: 52 Year
  Sex: Female

DRUGS (8)
  1. AMLODIPINE [Concomitant]
     Active Substance: AMLODIPINE BESYLATE
     Dosage: 5 MG, 1X/DAY
     Route: 048
  2. LOSARTAN AND HYDROCHLOROTHIAZIDE [Concomitant]
     Active Substance: HYDROCHLOROTHIAZIDE\LOSARTAN POTASSIUM
     Dosage: 100 MG, 1X/DAY
     Route: 048
  3. SULFASALAZINE. [Suspect]
     Active Substance: SULFASALAZINE
     Dosage: 2500 MG, DAILY (3 TABLETS IN AM AND 2 TABLETS IN PM)
     Dates: start: 201411
  4. METFORMIN [Concomitant]
     Active Substance: METFORMIN HYDROCHLORIDE
     Dosage: 500 MG, 2X/DAY
     Route: 048
  5. METHOTREXATE. [Concomitant]
     Active Substance: METHOTREXATE
     Dosage: 12.5 MG, WEEKLY
     Route: 048
     Dates: start: 201801, end: 201804
  6. LEFLUNOMIDE. [Concomitant]
     Active Substance: LEFLUNOMIDE
     Dosage: 20 MG, 1X/DAY
     Route: 048
     Dates: start: 201810, end: 201812
  7. METHOTREXATE. [Concomitant]
     Active Substance: METHOTREXATE
     Dosage: 10 MG, UNK
     Dates: start: 201804, end: 201804
  8. METHOTREXATE. [Concomitant]
     Active Substance: METHOTREXATE
     Dosage: 15 MG, UNK
     Dates: start: 201804, end: 201804

REACTIONS (8)
  - Spinal flattening [Unknown]
  - Intervertebral disc degeneration [Unknown]
  - Pulmonary mass [Unknown]
  - Vertebral osteophyte [Unknown]
  - Mycobacterium tuberculosis complex test positive [Unknown]
  - Psoriatic arthropathy [Not Recovered/Not Resolved]
  - Osteoporosis [Unknown]
  - Polyarthritis [Unknown]

NARRATIVE: CASE EVENT DATE: 2015
